FAERS Safety Report 4737002-1 (Version None)
Quarter: 2005Q3

REPORT INFORMATION
  Report Type: 
  Country: None (occurrence: None)
  Receive Date: 20050804
  Receipt Date: 20050721
  Transmission Date: 20060218
  Serious: Yes (Hospitalization)
  Sender: FDA-Public Use
  Company Number: DSA_25664_2005

PATIENT
  Age: 61 Year
  Sex: Male

DRUGS (5)
  1. ENALAPRIL MALEATE [Suspect]
     Indication: ARRHYTHMIA
     Dosage: 20 MG QD PO
     Route: 048
     Dates: start: 20041220
  2. AMIODARONE HYDROCHLORIDE [Suspect]
     Indication: ARRHYTHMIA
     Dosage: 200 MG Q DAY PO
     Route: 048
     Dates: start: 20041220, end: 20050110
  3. ATENOLOL [Suspect]
     Dosage: 50 MG Q DAY PO
     Route: 048
     Dates: start: 20041220, end: 20050110
  4. INSULIN LISPRO [Concomitant]
  5. PRISTINAMYCIN [Concomitant]

REACTIONS (4)
  - DERMATITIS EXFOLIATIVE [None]
  - EOSINOPHIL COUNT INCREASED [None]
  - PURPURA [None]
  - WHITE BLOOD CELL COUNT DECREASED [None]
